FAERS Safety Report 8486649-8 (Version None)
Quarter: 2012Q3

REPORT INFORMATION
  Report Type: 
  Country: None (occurrence: None)
  Receive Date: 20120703
  Receipt Date: 20120627
  Transmission Date: 20120928
  Serious: Yes (Other)
  Sender: FDA-Public Use
  Company Number: GB-ALLERGAN-1206876US

PATIENT
  Age: 40 Year
  Sex: Female

DRUGS (4)
  1. FML [Suspect]
     Indication: EYE INFLAMMATION
     Dosage: 2 GTT, QD
     Route: 047
     Dates: start: 20120531
  2. FML [Suspect]
     Dosage: 2 GTT, TID
     Route: 047
     Dates: start: 20120519, end: 20120525
  3. FML [Suspect]
     Dosage: 2 GTT, BID
     Route: 047
     Dates: start: 20120525, end: 20120531
  4. FML [Suspect]
     Dosage: 2 GTT, QID
     Route: 047
     Dates: start: 20120513, end: 20120519

REACTIONS (2)
  - ABORTION SPONTANEOUS [None]
  - PREGNANCY [None]
